FAERS Safety Report 17285566 (Version 2)
Quarter: 2020Q3

REPORT INFORMATION
  Report Type: Report from Study
  Country: US (occurrence: US)
  Receive Date: 20200117
  Receipt Date: 20200828
  Transmission Date: 20201102
  Serious: Yes (Hospitalization, Other)
  Sender: FDA-Public Use
  Company Number: US-GILEAD-2020-0447173

PATIENT
  Age: 27 Year
  Sex: Male

DRUGS (13)
  1. ADDERALL [Concomitant]
     Active Substance: AMPHETAMINE ASPARTATE\AMPHETAMINE SULFATE\DEXTROAMPHETAMINE SACCHARATE\DEXTROAMPHETAMINE SULFATE
  2. PREDNISONE. [Concomitant]
     Active Substance: PREDNISONE
  3. AZTREONAM LYSINE [Suspect]
     Active Substance: AZTREONAM LYSINE
     Indication: CYSTIC FIBROSIS LUNG
     Dosage: 75 MG, TID
     Route: 055
     Dates: start: 20160913
  4. AMPHETAMINE [Concomitant]
     Active Substance: AMPHETAMINE
  5. DEXTROAMPHETAMINE [DEXAMFETAMINE] [Concomitant]
     Active Substance: DEXTROAMPHETAMINE
     Dosage: UNK
  6. TRAZODONE [Concomitant]
     Active Substance: TRAZODONE HYDROCHLORIDE
  7. VENTOLINE [SALBUTAMOL SULFATE] [Concomitant]
     Active Substance: ALBUTEROL SULFATE
  8. BUPROPION. [Concomitant]
     Active Substance: BUPROPION
  9. PAROXETINE. [Concomitant]
     Active Substance: PAROXETINE
  10. AZITHROMYCIN ANHYDROUS. [Concomitant]
     Active Substance: AZITHROMYCIN ANHYDROUS
  11. QVAR [Concomitant]
     Active Substance: BECLOMETHASONE DIPROPIONATE
  12. VITAMIN D [VITAMIN D NOS] [Concomitant]
     Active Substance: VITAMIN D NOS
  13. HYDROCHLOROTHIAZIDE. [Concomitant]
     Active Substance: HYDROCHLOROTHIAZIDE

REACTIONS (2)
  - Cystic fibrosis [Not Recovered/Not Resolved]
  - Cystic fibrosis respiratory infection suppression [Unknown]
